FAERS Safety Report 15477619 (Version 1)
Quarter: 2018Q4

REPORT INFORMATION
  Report Type: Spontaneous
  Country: JP (occurrence: JP)
  Receive Date: 20181009
  Receipt Date: 20181009
  Transmission Date: 20190205
  Serious: Yes (Other)
  Sender: FDA-Public Use
  Company Number: JP-BAYER-2018-181773

PATIENT

DRUGS (3)
  1. UPTRAVI [Suspect]
     Active Substance: SELEXIPAG
  2. ADEMPAS [Suspect]
     Active Substance: RIOCIGUAT
     Indication: PULMONARY ARTERIAL HYPERTENSION
     Dosage: UNK
     Route: 048
     Dates: start: 20150901
  3. ADEMPAS [Suspect]
     Active Substance: RIOCIGUAT
     Indication: HIV INFECTION

REACTIONS (2)
  - Blood pressure decreased [Unknown]
  - Syncope [Unknown]
